FAERS Safety Report 7526297-7 (Version None)
Quarter: 2011Q2

REPORT INFORMATION
  Report Type: 
  Country: None (occurrence: None)
  Receive Date: 20110527
  Receipt Date: 20110512
  Transmission Date: 20111010
  Serious: Yes (Other)
  Sender: FDA-Public Use
  Company Number: AUR-APL-2011-01489

PATIENT
  Age: 73 Year
  Sex: Male

DRUGS (6)
  1. SIMVASTATIN [Suspect]
     Dosage: 80MG-DAILY
  2. LABETALOL HCL [Concomitant]
  3. AZITHROMYCIN [Suspect]
     Indication: BRONCHITIS
     Dosage: 500MG-DAILY ; 250MG-DAILY
  4. PREDNISONE [Concomitant]
  5. ALLOPURINOL [Concomitant]
  6. BUTMETANIDE [Concomitant]

REACTIONS (3)
  - RHABDOMYOLYSIS [None]
  - DRUG INTERACTION [None]
  - BRONCHITIS [None]
